FAERS Safety Report 25329832 (Version 1)
Quarter: 2025Q2

REPORT INFORMATION
  Report Type: Spontaneous
  Country: GB (occurrence: GB)
  Receive Date: 20250519
  Receipt Date: 20250519
  Transmission Date: 20250716
  Serious: Yes (Other)
  Sender: TEVA
  Company Number: GB-MHRA-TPP1068943C11723287YC1747233833731

PATIENT
  Age: 62 Year
  Sex: Male
  Weight: 73 kg

DRUGS (15)
  1. DEXAMETHASONE [Suspect]
     Active Substance: DEXAMETHASONE
     Indication: Ill-defined disorder
     Route: 048
     Dates: start: 20250210
  2. PREGABALIN [Concomitant]
     Active Substance: PREGABALIN
     Indication: Ill-defined disorder
     Dates: start: 20250318
  3. CARBOCYSTEINE [Concomitant]
     Active Substance: CARBOCYSTEINE
     Indication: Ill-defined disorder
     Dosage: AT NIGHT ONLY AS PER PRIVATE
     Dates: start: 20250402
  4. LACTULOSE [Concomitant]
     Active Substance: LACTULOSE
     Indication: Ill-defined disorder
     Dates: start: 20250122
  5. MST [Concomitant]
     Indication: Ill-defined disorder
     Dates: start: 20250127
  6. PREDNISOLONE [Concomitant]
     Active Substance: PREDNISOLONE
     Indication: Ill-defined disorder
     Dates: start: 20250402
  7. CELECOXIB [Concomitant]
     Active Substance: CELECOXIB
     Indication: Ill-defined disorder
     Dates: start: 20250402
  8. CARBOHYDRATES\FATTY ACIDS\MINERALS\PROTEIN\VITAMINS [Concomitant]
     Active Substance: CARBOHYDRATES\FATTY ACIDS\MINERALS\PROTEIN\VITAMINS
     Indication: Ill-defined disorder
     Dates: start: 20250319, end: 20250416
  9. ARTIFICIAL SALIVA [Concomitant]
     Indication: Ill-defined disorder
     Dates: start: 20250501, end: 20250502
  10. LANSOPRAZOLE [Concomitant]
     Active Substance: LANSOPRAZOLE
     Indication: Ill-defined disorder
     Dosage: 30 MINS BEFORE BREAKFAST
     Dates: start: 20250310
  11. FRESUBIN 2 KCAL FIBRE [Concomitant]
     Indication: Ill-defined disorder
     Dates: start: 20250514
  12. ACETAMINOPHEN [Concomitant]
     Active Substance: ACETAMINOPHEN
     Indication: Ill-defined disorder
     Dates: start: 20250210
  13. MORPHINE SULFATE [Concomitant]
     Active Substance: MORPHINE SULFATE
     Indication: Ill-defined disorder
     Dosage: AS NEEDED
     Dates: start: 20250122
  14. DOCUSATE SODIUM [Concomitant]
     Active Substance: DOCUSATE SODIUM
     Indication: Ill-defined disorder
     Dates: start: 20250501, end: 20250507
  15. MIDAZOLAM HYDROCHLORIDE [Concomitant]
     Active Substance: MIDAZOLAM HYDROCHLORIDE
     Indication: Ill-defined disorder
     Dates: start: 20250402, end: 20250403

REACTIONS (1)
  - Acute psychosis [Recovered/Resolved]

NARRATIVE: CASE EVENT DATE: 20250210
